FAERS Safety Report 4381047-0 (Version None)
Quarter: 2004Q2

REPORT INFORMATION
  Report Type: 
  Country: None (occurrence: None)
  Receive Date: 20040601
  Receipt Date: 20040701
  Transmission Date: 20050107
  Serious: No
  Sender: FDA-Public Use
  Company Number: FABR-10533

PATIENT
  Age: 37 Year
  Sex: Male
  Weight: 69.4 kg

DRUGS (6)
  1. FABRAZYME [Suspect]
     Indication: FABRY'S DISEASE
     Dosage: 1 MG/KG Q2WKS IV
     Route: 042
     Dates: start: 20040119, end: 20040401
  2. APAP TAB [Concomitant]
  3. BENADRYL [Concomitant]
  4. RENAGEL [Concomitant]
  5. NEURONTIN [Concomitant]
  6. LOTENSIN [Concomitant]

REACTIONS (6)
  - BLOOD PRESSURE INCREASED [None]
  - CHILLS [None]
  - DYSPNOEA [None]
  - HEADACHE [None]
  - NAUSEA [None]
  - VOMITING [None]
